FAERS Safety Report 5070901-2 (Version None)
Quarter: 2006Q3

REPORT INFORMATION
  Report Type: 
  Country: None (occurrence: None)
  Receive Date: 20060804
  Receipt Date: 20060725
  Transmission Date: 20061208
  Serious: Yes (Hospitalization)
  Sender: FDA-Public Use
  Company Number: JP-JNJFOC-20060701622

PATIENT
  Sex: Male

DRUGS (6)
  1. LOPEMIN [Suspect]
     Indication: ENTEROCOLITIS
     Dosage: IN THREE DIVIDED DOSES
     Route: 048
  2. CALONAL [Suspect]
     Indication: PYREXIA
     Route: 048
  3. ASTOMIN [Concomitant]
     Route: 048
  4. NAUZELIN [Concomitant]
     Route: 065
  5. ALESION [Concomitant]
     Route: 048
  6. STOMILASE [Concomitant]
     Route: 048

REACTIONS (3)
  - BACTERIA STOOL IDENTIFIED [None]
  - NEPHRITIS INTERSTITIAL [None]
  - RENAL IMPAIRMENT [None]
